FAERS Safety Report 14203543 (Version 1)
Quarter: 2017Q4

REPORT INFORMATION
  Report Type: Spontaneous
  Country: US (occurrence: None)
  Receive Date: 20171117
  Receipt Date: 20171117
  Transmission Date: 20180321
  Serious: No
  Sender: FDA-Public Use
  Company Number: None

PATIENT
  Age: 10 Year
  Sex: Male

DRUGS (1)
  1. HUMIRA [Suspect]
     Active Substance: ADALIMUMAB
     Indication: JUVENILE IDIOPATHIC ARTHRITIS
     Dosage: DOSE - 1 PEN
     Route: 058
     Dates: start: 20170815

REACTIONS (2)
  - Rash [None]
  - Wrong technique in product usage process [None]

NARRATIVE: CASE EVENT DATE: 20170926
